FAERS Safety Report 25710044 (Version 3)
Quarter: 2025Q3

REPORT INFORMATION
  Report Type: Report from Study
  Country: BR (occurrence: BR)
  Receive Date: 20250821
  Receipt Date: 20250930
  Transmission Date: 20251021
  Serious: Yes (Other)
  Sender: CELLTRION
  Company Number: BR-CELLTRION INC.-2024BR031132

PATIENT

DRUGS (21)
  1. INFLIXIMAB-DYYB [Suspect]
     Active Substance: INFLIXIMAB-DYYB
     Indication: Crohn^s disease
     Route: 042
     Dates: start: 20230511
  2. INFLIXIMAB-DYYB [Suspect]
     Active Substance: INFLIXIMAB-DYYB
     Route: 042
     Dates: start: 20240926
  3. INFLIXIMAB-DYYB [Suspect]
     Active Substance: INFLIXIMAB-DYYB
     Dates: start: 20250606
  4. INFLIXIMAB-DYYB [Suspect]
     Active Substance: INFLIXIMAB-DYYB
     Route: 042
     Dates: start: 20250706
  5. INFLIXIMAB-DYYB [Suspect]
     Active Substance: INFLIXIMAB-DYYB
     Dates: start: 20250821
  6. AMIODARONE [Concomitant]
     Active Substance: AMIODARONE
     Indication: Arrhythmia
     Route: 048
  7. LOSARTAN [Concomitant]
     Active Substance: LOSARTAN
     Indication: Hypertension
     Route: 048
  8. CYCLOBENZAPRINE [Concomitant]
     Active Substance: CYCLOBENZAPRINE
     Indication: Spinal pain
     Route: 048
  9. CYCLOBENZAPRINE [Concomitant]
     Active Substance: CYCLOBENZAPRINE
     Indication: Neuralgia
  10. CYCLOBENZAPRINE [Concomitant]
     Active Substance: CYCLOBENZAPRINE
     Indication: Spinal disorder
  11. BENESTARE [Concomitant]
     Indication: Crohn^s disease
     Route: 048
  12. BUDESONIDE\FORMOTEROL FUMARATE [Concomitant]
     Active Substance: BUDESONIDE\FORMOTEROL FUMARATE
     Indication: Asthma
     Route: 065
  13. LOPERAMIDE [Concomitant]
     Active Substance: LOPERAMIDE
     Indication: Diarrhoea
     Route: 065
  14. LAVITAN A Z [Concomitant]
     Indication: Hair disorder
     Route: 065
  15. LAVITAN A Z [Concomitant]
     Indication: Nail disorder
  16. CALCIUM [Concomitant]
     Active Substance: CALCIUM
     Indication: Alopecia
     Route: 065
     Dates: start: 202412
  17. CALCIUM [Concomitant]
     Active Substance: CALCIUM
     Indication: Onychoclasis
  18. VITAMINS NOS [Concomitant]
     Active Substance: VITAMINS
     Indication: Alopecia
     Dosage: 5.000 UI EVERY WEEK
     Route: 065
     Dates: start: 202412
  19. VITAMINS NOS [Concomitant]
     Active Substance: VITAMINS
     Indication: Onychoclasis
  20. YOGURT [Concomitant]
     Indication: Alopecia
     Route: 065
  21. YOGURT [Concomitant]
     Indication: Onychoclasis
     Route: 065

REACTIONS (18)
  - Symptom recurrence [Recovering/Resolving]
  - Noninfective gingivitis [Recovering/Resolving]
  - Hypertension [Recovering/Resolving]
  - Proctalgia [Recovering/Resolving]
  - Blood urine present [Recovering/Resolving]
  - Neck pain [Recovering/Resolving]
  - Cold sweat [Recovering/Resolving]
  - Haemorrhage [Recovering/Resolving]
  - Onychoclasis [Recovering/Resolving]
  - Platelet count decreased [Recovering/Resolving]
  - Alopecia [Recovering/Resolving]
  - Pulpitis dental [Recovering/Resolving]
  - Influenza [Recovering/Resolving]
  - Nasopharyngitis [Recovering/Resolving]
  - Anaemia [Recovering/Resolving]
  - Fatigue [Recovering/Resolving]
  - Headache [Recovering/Resolving]
  - Intentional dose omission [Recovering/Resolving]

NARRATIVE: CASE EVENT DATE: 20210101
